FAERS Safety Report 8811196 (Version 1)
Quarter: 2012Q4

REPORT INFORMATION
  Report Type: Spontaneous
  Country: US (occurrence: None)
  Receive Date: 20120924
  Receipt Date: 20120924
  Transmission Date: 20130627
  Serious: Yes (Life-Threatening)
  Sender: FDA-Public Use
  Company Number: None

PATIENT
  Age: 40 Year
  Sex: Female
  Weight: 84.3 kg

DRUGS (2)
  1. ZOSYN [Suspect]
     Indication: CHOLECYSTITIS
     Route: 040
  2. VANCOMYCIN [Suspect]
     Route: 040

REACTIONS (2)
  - Renal impairment [None]
  - Haemodialysis [None]
